FAERS Safety Report 12297109 (Version 2)
Quarter: 2016Q2

REPORT INFORMATION
  Report Type: Spontaneous
  Country: ES (occurrence: ES)
  Receive Date: 20160422
  Receipt Date: 20160429
  Transmission Date: 20160815
  Serious: Yes (Life-Threatening, Hospitalization)
  Sender: FDA-Public Use
  Company Number: ES-ELI_LILLY_AND_COMPANY-ES201604006819

PATIENT
  Age: 48 Year
  Sex: Female

DRUGS (4)
  1. CYMBALTA [Suspect]
     Active Substance: DULOXETINE HYDROCHLORIDE
     Indication: PRODUCT USED FOR UNKNOWN INDICATION
     Dosage: 60 MG, QD
     Route: 048
     Dates: start: 201408
  2. PARACETAMOL [Concomitant]
     Active Substance: ACETAMINOPHEN
     Dosage: 1 G, TID
     Route: 042
     Dates: start: 20150102
  3. PANTOPRAZOLE [Concomitant]
     Active Substance: PANTOPRAZOLE SODIUM
     Dosage: 40 MG, QD
     Route: 042
     Dates: start: 20150102
  4. DEXKETOPROFEN [Interacting]
     Active Substance: DEXKETOPROFEN
     Indication: THERMAL BURN
     Dosage: 50 MG, QD
     Route: 042
     Dates: start: 20150102, end: 20150108

REACTIONS (11)
  - Thermal burn [Unknown]
  - Renal failure [Unknown]
  - Alcoholic liver disease [Unknown]
  - Tracheobronchitis [Unknown]
  - Hypovolaemic shock [Unknown]
  - Encephalopathy [Unknown]
  - Fluid retention [Unknown]
  - Anaemia [Recovering/Resolving]
  - Drug interaction [Unknown]
  - Oesophagitis [Recovering/Resolving]
  - Confusional state [Unknown]

NARRATIVE: CASE EVENT DATE: 20150108
